FAERS Safety Report 19410456 (Version 1)
Quarter: 2021Q2

REPORT INFORMATION
  Report Type: Spontaneous
  Country: US (occurrence: US)
  Receive Date: 20210613
  Receipt Date: 20210613
  Transmission Date: 20210717
  Serious: No
  Sender: FDA-Public Use
  Company Number: None

PATIENT
  Age: 57 Year
  Sex: Female
  Weight: 85.5 kg

DRUGS (10)
  1. PREGABALIN. [Concomitant]
     Active Substance: PREGABALIN
  2. MAGNESIUM [Concomitant]
     Active Substance: MAGNESIUM
  3. ZINC. [Concomitant]
     Active Substance: ZINC
  4. PANTOPRAZOLE [Concomitant]
     Active Substance: PANTOPRAZOLE
  5. CALCIUM [Concomitant]
     Active Substance: CALCIUM
  6. ALPROZALAM [Concomitant]
  7. ZILRETTA [Suspect]
     Active Substance: TRIAMCINOLONE ACETONIDE
     Indication: OSTEOARTHRITIS
     Dosage: ?          OTHER ROUTE:INJECTION IN THE KNEE?
     Dates: start: 20210525, end: 20210525
  8. NABUMATONE [Concomitant]
     Active Substance: NABUMETONE
  9. OMEGA 3 [Concomitant]
     Active Substance: OMEGA-3 FATTY ACIDS
  10. VITAMIN D [Concomitant]
     Active Substance: VITAMIN D NOS

REACTIONS (7)
  - Arthralgia [None]
  - Patella fracture [None]
  - Fall [None]
  - Frustration tolerance decreased [None]
  - Pain [None]
  - Inadequate analgesia [None]
  - Impaired healing [None]

NARRATIVE: CASE EVENT DATE: 20210525
